FAERS Safety Report 19984560 (Version 1)
Quarter: 2021Q4

REPORT INFORMATION
  Report Type: Spontaneous
  Country: PL (occurrence: PL)
  Receive Date: 20211021
  Receipt Date: 20211021
  Transmission Date: 20220303
  Serious: Yes (Life-Threatening, Other)
  Sender: FDA-Public Use
  Company Number: PL-NEBO-PC007483

PATIENT
  Age: 70 Year
  Sex: Male
  Weight: 96 kg

DRUGS (18)
  1. EPLERENONE [Suspect]
     Active Substance: EPLERENONE
     Dosage: UNK
  2. IRON ISOMALTOSIDE 1000 [Suspect]
     Active Substance: IRON ISOMALTOSIDE 1000
     Indication: Cardiac failure
     Dosage: 500 MG
     Route: 042
     Dates: start: 20210930, end: 20210930
  3. ATORVASTATIN CALCIUM [Concomitant]
     Active Substance: ATORVASTATIN CALCIUM
     Dosage: UNK
  4. BUPRENORPHINE [Concomitant]
     Active Substance: BUPRENORPHINE
     Dosage: UNK
  5. SPIRONOLACTONE [Concomitant]
     Active Substance: SPIRONOLACTONE
     Dosage: UNK
  6. CIPRONEX [CIPROFLOXACIN] [Concomitant]
     Dosage: UNK
  7. DIGOXIN [Concomitant]
     Active Substance: DIGOXIN
     Dosage: UNK
  8. BISOPROLOL FUMARATE [Concomitant]
     Active Substance: BISOPROLOL FUMARATE
     Dosage: UNK
  9. FUROSEMIDE [Concomitant]
     Active Substance: FUROSEMIDE
     Dosage: UNK
  10. TORSEMIDE [Concomitant]
     Active Substance: TORSEMIDE
     Dosage: UNK
  11. POTASSIUM CHLORIDE [Concomitant]
     Active Substance: POTASSIUM CHLORIDE
     Dosage: UNK
  12. ACETAMINOPHEN [Concomitant]
     Active Substance: ACETAMINOPHEN
     Dosage: UNK
  13. ENTRESTO [Concomitant]
     Active Substance: SACUBITRIL\VALSARTAN
     Indication: Cardiac failure chronic
     Dosage: UNK
  14. ENOXAPARIN SODIUM [Concomitant]
     Active Substance: ENOXAPARIN SODIUM
     Dosage: UNK
  15. JARDIANCE [Concomitant]
     Active Substance: EMPAGLIFLOZIN
     Indication: Cardiac failure chronic
     Dosage: UNK
  16. HYDROXYZINE HYDROCHLORIDE [Concomitant]
     Active Substance: HYDROXYZINE HYDROCHLORIDE
     Dosage: UNK
  17. TRAMADOL [Concomitant]
     Active Substance: TRAMADOL
     Dosage: UNK
  18. BICALUTAMIDE [Concomitant]
     Active Substance: BICALUTAMIDE
     Indication: Prostate cancer
     Dosage: UNK

REACTIONS (2)
  - Pulmonary oedema [Recovered/Resolved]
  - Blood pressure increased [Recovered/Resolved]

NARRATIVE: CASE EVENT DATE: 20210930
